FAERS Safety Report 5811660-2 (Version None)
Quarter: 2008Q3

REPORT INFORMATION
  Report Type: 
  Country: None (occurrence: None)
  Receive Date: 20080714
  Receipt Date: 20080702
  Transmission Date: 20090109
  Serious: Yes (Other)
  Sender: FDA-Public Use
  Company Number: 100#03#2008-03455

PATIENT
  Age: 50 Year
  Sex: Female

DRUGS (3)
  1. CEPOREX (CAPSULES) (CEFALEXIN) [Suspect]
     Indication: PHARYNGITIS
     Dosage: 2X 500 MG, TWICE DAILY ORAL
     Route: 048
     Dates: start: 20080219, end: 20080219
  2. CONCOR COR (BISOPROLOL) [Concomitant]
  3. KNAVON F (KETOPROFEN) [Concomitant]

REACTIONS (5)
  - DYSPHAGIA [None]
  - DYSPHONIA [None]
  - FACE OEDEMA [None]
  - LIP OEDEMA [None]
  - PRURITUS GENERALISED [None]
